FAERS Safety Report 8996922 (Version 1)
Quarter: 2013Q1

REPORT INFORMATION
  Report Type: Spontaneous
  Country: GB (occurrence: GB)
  Receive Date: 20130104
  Receipt Date: 20130104
  Transmission Date: 20140127
  Serious: Yes (Hospitalization, Other)
  Sender: FDA-Public Use
  Company Number: GB-ASTRAZENECA-2012SE96262

PATIENT
  Age: 29950 Day
  Sex: Female
  Weight: 41.5 kg

DRUGS (8)
  1. QUETIAPINE [Suspect]
     Route: 048
     Dates: start: 20110613, end: 20121217
  2. CALCICHEW D3 [Concomitant]
  3. CO-CODAMOL [Concomitant]
  4. ENOXAPARIN SODIUM [Concomitant]
     Dosage: 40MG 1 DAYS
     Dates: end: 20121208
  5. FOLIC ACID [Concomitant]
  6. LACTULOSE SOLUTION [Concomitant]
  7. MICONAZOLE [Concomitant]
  8. SENNA [Concomitant]

REACTIONS (3)
  - Hypernatraemia [Not Recovered/Not Resolved]
  - Dehydration [Unknown]
  - Femoral neck fracture [Unknown]
